FAERS Safety Report 21504866 (Version 2)
Quarter: 2022Q4

REPORT INFORMATION
  Report Type: Other
  Country: CN (occurrence: None)
  Receive Date: 20221025
  Receipt Date: 20221206
  Transmission Date: 20230112
  Serious: Yes (Other)
  Sender: FDA-Public Use
  Company Number: CN-ROCHE-3203886

PATIENT
  Age: 58 Year
  Sex: Male
  Weight: 53 kg

DRUGS (3)
  1. ALECENSA [Suspect]
     Active Substance: ALECTINIB HYDROCHLORIDE
     Indication: Lung adenocarcinoma stage IV
     Dosage: CAPSULES, 150 MG* 224 CAPSULES (56 CAPSULES* 4 SMALL BOXES)
     Route: 048
     Dates: start: 20200705
  2. URSODIOL [Concomitant]
     Active Substance: URSODIOL
     Indication: Blood bilirubin increased
     Dosage: CAPSULES, 250 MG* 25 CAPSULES?1 DF= 1 CAPSULE
     Route: 048
  3. URSODIOL [Concomitant]
     Active Substance: URSODIOL
     Indication: Bile duct stone

REACTIONS (6)
  - Bile duct stone [Not Recovered/Not Resolved]
  - Blood bilirubin increased [Recovering/Resolving]
  - Muscular weakness [Not Recovered/Not Resolved]
  - Myalgia [Recovered/Resolved]
  - Constipation [Recovered/Resolved]
  - Blood uric acid increased [Recovered/Resolved]

NARRATIVE: CASE EVENT DATE: 20200710
